FAERS Safety Report 4887091-9 (Version None)
Quarter: 2006Q1

REPORT INFORMATION
  Report Type: 
  Country: None (occurrence: None)
  Receive Date: 20060120
  Receipt Date: 20051005
  Transmission Date: 20060701
  Serious: Yes (Other)
  Sender: FDA-Public Use
  Company Number: US-MERCK-0510USA04783

PATIENT
  Age: 51 Year
  Sex: Female
  Weight: 52 kg

DRUGS (21)
  1. VIOXX [Suspect]
     Indication: ARTHRALGIA
     Route: 048
     Dates: start: 20000101, end: 20000101
  2. VIOXX [Suspect]
     Route: 048
     Dates: start: 20000101, end: 20000101
  3. VIOXX [Suspect]
     Indication: ARTHRITIS
     Route: 048
     Dates: start: 20000101, end: 20000101
  4. VIOXX [Suspect]
     Route: 048
     Dates: start: 20000101, end: 20000101
  5. FOSAMAX [Concomitant]
     Route: 048
  6. ESTRADIOL [Concomitant]
     Route: 065
  7. MINOCYCLINE [Concomitant]
     Route: 065
  8. COUMADIN [Concomitant]
     Route: 065
  9. ASPIRIN [Concomitant]
     Route: 065
  10. NEXIUM [Concomitant]
     Route: 065
  11. ALLEGRA [Concomitant]
     Route: 065
  12. SINGULAIR [Concomitant]
     Route: 048
  13. CALCIUM (UNSPECIFIED) [Concomitant]
     Route: 065
  14. BROMPHEN [Concomitant]
     Route: 065
  15. FLECAINIDE ACETATE [Concomitant]
     Route: 065
  16. BISOPROLOL FUMARATE [Concomitant]
     Route: 065
  17. MAGNESIUM (UNSPECIFIED) [Concomitant]
     Route: 065
  18. VITAMIN E [Concomitant]
     Route: 065
  19. OMEGA-3 MARINE TRIGLYCERIDES [Concomitant]
     Route: 065
  20. SODIUM (UNSPECIFIED) [Concomitant]
     Route: 065
  21. PROTONIX [Concomitant]
     Route: 065

REACTIONS (1)
  - ISCHAEMIC STROKE [None]
